FAERS Safety Report 7162048-6 (Version None)
Quarter: 2010Q4

REPORT INFORMATION
  Report Type: 
  Country: None (occurrence: None)
  Receive Date: 20101215
  Receipt Date: 20090728
  Transmission Date: 20110411
  Serious: Yes (Hospitalization, Other)
  Sender: FDA-Public Use
  Company Number: SE-PFIZER INC-2009246499

PATIENT
  Age: 29 Year

DRUGS (1)
  1. LYRICA [Suspect]
     Dosage: 9-10.5G
     Route: 065

REACTIONS (4)
  - DRY MOUTH [None]
  - OVERDOSE [None]
  - TACHYCARDIA [None]
  - VISUAL IMPAIRMENT [None]
